FAERS Safety Report 4367805-7 (Version None)
Quarter: 2004Q2

REPORT INFORMATION
  Report Type: 
  Country: None (occurrence: None)
  Receive Date: 20040526
  Receipt Date: 20040302
  Transmission Date: 20050107
  Serious: Yes (Hospitalization)
  Sender: FDA-Public Use
  Company Number: USA040360775

PATIENT
  Age: 56 Year
  Sex: Female
  Weight: 59 kg

DRUGS (12)
  1. ZYPREXA [Suspect]
     Indication: BIPOLAR DISORDER
     Dosage: 50 MG/1 DAY
     Dates: start: 20020805
  2. ZYPREXA [Suspect]
     Indication: SCHIZOAFFECTIVE DISORDER
     Dosage: 50 MG/1 DAY
     Dates: start: 20020805
  3. COGENTIN [Concomitant]
  4. VITAMIN E [Concomitant]
  5. PREVACID [Concomitant]
  6. CELEBREX [Concomitant]
  7. PREMARIN [Concomitant]
  8. SYNTHROID [Concomitant]
  9. VITAMIN D [Concomitant]
  10. COLACE (DOCUSATE SODIUM) [Concomitant]
  11. HALDOL [Concomitant]
  12. MULTI-VITAMIN [Concomitant]

REACTIONS (9)
  - AGITATION [None]
  - HYPONATRAEMIA [None]
  - INCONTINENCE [None]
  - LOSS OF CONSCIOUSNESS [None]
  - MYDRIASIS [None]
  - NEUROLOGICAL EXAMINATION ABNORMAL [None]
  - PRESCRIBED OVERDOSE [None]
  - PUPILLARY REFLEX IMPAIRED [None]
  - VOMITING [None]
